FAERS Safety Report 6713135-5 (Version None)
Quarter: 2010Q2

REPORT INFORMATION
  Report Type: 
  Country: None (occurrence: None)
  Receive Date: 20100505
  Receipt Date: 20100505
  Transmission Date: 20101027
  Serious: Yes (Other)
  Sender: FDA-Public Use
  Company Number: None

PATIENT
  Age: 10 Year
  Sex: Female
  Weight: 43.5453 kg

DRUGS (1)
  1. CHILDREN'S TYLENOL 160 MG PER 5 ML MCNEIL-PPC INC [Suspect]
     Indication: PYREXIA
     Dosage: 12.5 ML 8-12 HOURS PO
     Route: 048
     Dates: start: 20100417, end: 20100421

REACTIONS (2)
  - PRODUCT QUALITY ISSUE [None]
  - PYREXIA [None]
